FAERS Safety Report 8184799-7 (Version None)
Quarter: 2012Q1

REPORT INFORMATION
  Report Type: 
  Country: None (occurrence: None)
  Receive Date: 20120305
  Receipt Date: 20120301
  Transmission Date: 20120608
  Serious: Yes (Other)
  Sender: FDA-Public Use
  Company Number: GB-PFIZER INC-2012057673

PATIENT
  Age: 38 Year
  Sex: Female

DRUGS (2)
  1. CABERGOLINE [Suspect]
     Indication: GYNAECOLOGICAL EXAMINATION
     Dosage: 250 UG, MONDAY TO FRIDAY ONLY
     Dates: start: 20120101
  2. CABERGOLINE [Suspect]
     Indication: MENSTRUAL CYCLE MANAGEMENT

REACTIONS (1)
  - NEOPLASM [None]
